FAERS Safety Report 12842795 (Version 6)
Quarter: 2017Q2

REPORT INFORMATION
  Report Type: Spontaneous
  Country: US (occurrence: US)
  Receive Date: 20161013
  Receipt Date: 20170525
  Transmission Date: 20170830
  Serious: Yes (Other)
  Sender: FDA-Public Use
  Company Number: US-PFIZER INC-2016476367

PATIENT
  Age: 70 Year
  Sex: Female
  Weight: 79.82 kg

DRUGS (3)
  1. IBRANCE [Suspect]
     Active Substance: PALBOCICLIB
     Dosage: 100 MG, CYCLIC (DAY 1-21 Q 28 DAYS)
     Route: 048
  2. IBRANCE [Suspect]
     Active Substance: PALBOCICLIB
     Indication: BREAST CANCER METASTATIC
     Dosage: 100 MG, CYCLIC (DAY 1-21 Q 28 DAYS)
     Route: 048
     Dates: start: 20160201
  3. IBRANCE [Suspect]
     Active Substance: PALBOCICLIB
     Dosage: 100 MG, CYCLIC (DAY 1-21 Q 28 DAYS)
     Route: 048

REACTIONS (16)
  - Fatigue [Unknown]
  - Constipation [Unknown]
  - Urinary tract infection [Unknown]
  - Nausea [Unknown]
  - Dental caries [Unknown]
  - Back pain [Unknown]
  - Blood urine present [Unknown]
  - Arthralgia [Unknown]
  - Second primary malignancy [Unknown]
  - Eructation [Unknown]
  - Abdominal distension [Unknown]
  - Weight increased [Unknown]
  - Abdominal pain [Unknown]
  - Bladder cancer [Unknown]
  - Hiccups [Unknown]
  - Haemoglobin decreased [Unknown]
